FAERS Safety Report 17564086 (Version 1)
Quarter: 2020Q1

REPORT INFORMATION
  Report Type: Spontaneous
  Country: US (occurrence: US)
  Receive Date: 20200320
  Receipt Date: 20200320
  Transmission Date: 20200409
  Serious: No
  Sender: FDA-Public Use
  Company Number: NVSC2020US077597

PATIENT
  Age: 66 Year
  Sex: Female

DRUGS (1)
  1. DICLOFENAC SODIUM. [Suspect]
     Active Substance: DICLOFENAC SODIUM
     Indication: PAIN
     Dosage: UNK
     Route: 065
     Dates: start: 20200309, end: 20200311

REACTIONS (10)
  - Palpitations [Unknown]
  - Rash erythematous [Unknown]
  - Nausea [Unknown]
  - Malaise [Unknown]
  - Contraindicated product administered [Unknown]
  - Contusion [Unknown]
  - Hyperhidrosis [Unknown]
  - Gait disturbance [Unknown]
  - Adverse drug reaction [Unknown]
  - Contraindicated product prescribed [Unknown]

NARRATIVE: CASE EVENT DATE: 20200309
